FAERS Safety Report 13194639 (Version 1)
Quarter: 2017Q1

REPORT INFORMATION
  Report Type: Spontaneous
  Country: US (occurrence: US)
  Receive Date: 20170207
  Receipt Date: 20170207
  Transmission Date: 20170428
  Serious: No
  Sender: FDA-Public Use
  Company Number: US-JAZZ-2016-US-013663

PATIENT
  Sex: Female

DRUGS (8)
  1. PRIALT [Suspect]
     Active Substance: ZICONOTIDE ACETATE
     Indication: POST LAMINECTOMY SYNDROME
     Dosage: 0.038 ?G, QH
     Route: 037
     Dates: start: 20150813
  2. BACLOFEN. [Suspect]
     Active Substance: BACLOFEN
     Indication: POST LAMINECTOMY SYNDROME
     Dosage: 3.56 ?G, QH
     Route: 037
     Dates: start: 20150813
  3. SUFENTANIL CITRATE. [Suspect]
     Active Substance: SUFENTANIL CITRATE
     Indication: PAIN
     Dosage: 4.55 ?G, QH
     Route: 037
     Dates: start: 20150820
  4. BUPIVACAINE. [Suspect]
     Active Substance: BUPIVACAINE
     Indication: POST LAMINECTOMY SYNDROME
     Dosage: 0.350 MG, QH
     Route: 037
     Dates: start: 20150813
  5. BACLOFEN. [Suspect]
     Active Substance: BACLOFEN
     Indication: PAIN
     Dosage: 3.50 ?G, QH
     Route: 037
     Dates: start: 20150820
  6. PRIALT [Suspect]
     Active Substance: ZICONOTIDE ACETATE
     Indication: PAIN
     Dosage: 0.037 ?G, QH
     Route: 037
     Dates: start: 20150820
  7. BUPIVACAINE. [Suspect]
     Active Substance: BUPIVACAINE
     Indication: PAIN
     Dosage: 0.344 MG, QH
     Route: 037
     Dates: start: 20150820
  8. SUFENTANIL CITRATE. [Suspect]
     Active Substance: SUFENTANIL CITRATE
     Indication: POST LAMINECTOMY SYNDROME
     Dosage: 4.64 ?G, QH
     Route: 037
     Dates: start: 20150813

REACTIONS (1)
  - Muscular weakness [Recovered/Resolved]
